FAERS Safety Report 11914345 (Version 1)
Quarter: 2016Q1

REPORT INFORMATION
  Report Type: Report from Study
  Country: JP (occurrence: JP)
  Receive Date: 20160113
  Receipt Date: 20160113
  Transmission Date: 20160526
  Serious: Yes (Hospitalization)
  Sender: FDA-Public Use
  Company Number: JP-BAYER-2015-485909

PATIENT
  Age: 66 Year
  Sex: Male
  Weight: 60 kg

DRUGS (1)
  1. REGORAFENIB [Suspect]
     Active Substance: REGORAFENIB
     Indication: COLORECTAL CANCER
     Dosage: UNK
     Route: 048
     Dates: start: 20151106, end: 20151126

REACTIONS (4)
  - Hypertension [None]
  - Malaise [None]
  - Dyspnoea [None]
  - Pleural effusion [Not Recovered/Not Resolved]

NARRATIVE: CASE EVENT DATE: 20151112
